FAERS Safety Report 6788596-6 (Version None)
Quarter: 2010Q2

REPORT INFORMATION
  Report Type: 
  Country: None (occurrence: None)
  Receive Date: 20100623
  Receipt Date: 20080623
  Transmission Date: 20101027
  Serious: Yes (Other)
  Sender: FDA-Public Use
  Company Number: US-PFIZER INC-2008021469

PATIENT
  Sex: Female
  Weight: 90.72 kg

DRUGS (2)
  1. CADUET [Suspect]
     Indication: BLOOD CHOLESTEROL
     Dosage: 10\10MG QD EVERY DAY TDD:10\10MG
     Dates: start: 20080101, end: 20080225
  2. CADUET [Suspect]
     Indication: BLOOD PRESSURE

REACTIONS (6)
  - BURNING SENSATION [None]
  - ERYTHEMA [None]
  - FEELING ABNORMAL [None]
  - GRAVITATIONAL OEDEMA [None]
  - HYPERTENSION [None]
  - RASH [None]
